FAERS Safety Report 19229760 (Version 2)
Quarter: 2021Q2

REPORT INFORMATION
  Report Type: Report from Study
  Country: US (occurrence: US)
  Receive Date: 20210507
  Receipt Date: 20210615
  Transmission Date: 20210717
  Serious: No
  Sender: FDA-Public Use
  Company Number: NVSC2021US096027

PATIENT
  Age: 43 Year
  Sex: Female
  Weight: 119.29 kg

DRUGS (1)
  1. KESIMPTA [Suspect]
     Active Substance: OFATUMUMAB
     Indication: PRODUCT USED FOR UNKNOWN INDICATION
     Dosage: 20 MG, QMO
     Route: 058
     Dates: start: 20210331

REACTIONS (3)
  - Abdominal discomfort [Recovered/Resolved]
  - Dyskinesia [Unknown]
  - Band sensation [Unknown]

NARRATIVE: CASE EVENT DATE: 20210331
